FAERS Safety Report 20160892 (Version 1)
Quarter: 2021Q4

REPORT INFORMATION
  Report Type: Spontaneous
  Country: US (occurrence: US)
  Receive Date: 20211208
  Receipt Date: 20211208
  Transmission Date: 20220303
  Serious: No
  Sender: FDA-Public Use
  Company Number: US-CURIUM-2021000801

PATIENT
  Sex: Male

DRUGS (2)
  1. TECHNETIUM TC-99M SODIUM PERTECHNETATE [Suspect]
     Active Substance: TECHNETIUM TC-99M SODIUM PERTECHNETATE
     Route: 065
     Dates: start: 20211102, end: 20211102
  2. MYOVIEW [Concomitant]
     Active Substance: TECHNETIUM TC-99M TETROFOSMIN
     Route: 065
     Dates: start: 20211102, end: 20211102

REACTIONS (1)
  - Cardiac imaging procedure abnormal [Unknown]

NARRATIVE: CASE EVENT DATE: 20211102
